FAERS Safety Report 16025630 (Version 2)
Quarter: 2021Q2

REPORT INFORMATION
  Report Type: Spontaneous
  Country: FR (occurrence: FR)
  Receive Date: 20190302
  Receipt Date: 20210428
  Transmission Date: 20210716
  Serious: Yes (Other)
  Sender: FDA-Public Use
  Company Number: FR-AUROBINDO-AUR-APL-2018-000338

PATIENT
  Age: 68 Year
  Sex: Male

DRUGS (20)
  1. DEXAMETHASONE. [Suspect]
     Active Substance: DEXAMETHASONE
     Indication: MANTLE CELL LYMPHOMA
  2. CYTARABINE. [Suspect]
     Active Substance: CYTARABINE
     Indication: MANTLE CELL LYMPHOMA
  3. CARMUSTINE. [Suspect]
     Active Substance: CARMUSTINE
     Indication: MANTLE CELL LYMPHOMA
  4. MELPHALAN. [Suspect]
     Active Substance: MELPHALAN
     Indication: MANTLE CELL LYMPHOMA
  5. CARMUSTINE. [Suspect]
     Active Substance: CARMUSTINE
     Indication: BONE MARROW CONDITIONING REGIMEN
     Dosage: UNK UNK, CYCLICAL
     Route: 065
  6. VEPESIDE [Suspect]
     Active Substance: ETOPOSIDE
     Indication: BONE MARROW CONDITIONING REGIMEN
  7. CYTARABINE. [Suspect]
     Active Substance: CYTARABINE
     Indication: STEM CELL TRANSPLANT
     Dosage: UNK UNK, CYCLICAL
     Route: 065
  8. MELPHALAN. [Suspect]
     Active Substance: MELPHALAN
     Indication: BONE MARROW CONDITIONING REGIMEN
     Dosage: UNK UNK, CYCLICAL
     Route: 065
  9. RITUXIMAB. [Suspect]
     Active Substance: RITUXIMAB
     Indication: STEM CELL TRANSPLANT
  10. RITUXIMAB. [Suspect]
     Active Substance: RITUXIMAB
     Indication: MANTLE CELL LYMPHOMA
  11. ETOPOSIDE. [Suspect]
     Active Substance: ETOPOSIDE
     Indication: MANTLE CELL LYMPHOMA
  12. VEPESIDE [Suspect]
     Active Substance: ETOPOSIDE
     Indication: MANTLE CELL LYMPHOMA
     Dosage: UNK UNK, CYCLICAL
     Route: 065
  13. OXALIPLATIN. [Suspect]
     Active Substance: OXALIPLATIN
     Indication: IMMUNOSUPPRESSANT DRUG THERAPY
     Dosage: UNK UNK, CYCLICAL
     Route: 065
  14. OXALIPLATIN. [Suspect]
     Active Substance: OXALIPLATIN
     Indication: MANTLE CELL LYMPHOMA
  15. RITUXIMAB. [Suspect]
     Active Substance: RITUXIMAB
     Indication: IMMUNOSUPPRESSANT DRUG THERAPY
     Dosage: UNK UNK, CYCLICAL
     Route: 065
  16. ETOPOSIDE. [Suspect]
     Active Substance: ETOPOSIDE
     Indication: BONE MARROW CONDITIONING REGIMEN
     Dosage: UNK UNK, CYCLICAL
     Route: 065
  17. OXALIPLATIN. [Suspect]
     Active Substance: OXALIPLATIN
     Indication: STEM CELL TRANSPLANT
  18. CYTARABINE. [Suspect]
     Active Substance: CYTARABINE
     Indication: IMMUNOSUPPRESSANT DRUG THERAPY
  19. DEXAMETHASONE. [Suspect]
     Active Substance: DEXAMETHASONE
     Indication: STEM CELL TRANSPLANT
     Dosage: UNK UNK, CYCLICAL
     Route: 065
  20. DEXAMETHASONE. [Suspect]
     Active Substance: DEXAMETHASONE
     Indication: IMMUNOSUPPRESSANT DRUG THERAPY

REACTIONS (6)
  - Weight increased [Unknown]
  - Venoocclusive liver disease [Recovered/Resolved]
  - Toxicity to various agents [Recovered/Resolved]
  - Hepatitis acute [Unknown]
  - Abdominal pain [Unknown]
  - Febrile neutropenia [Unknown]
